FAERS Safety Report 5628925-X (Version None)
Quarter: 2008Q1

REPORT INFORMATION
  Report Type: 
  Country: None (occurrence: None)
  Receive Date: 20080214
  Receipt Date: 20080207
  Transmission Date: 20080703
  Serious: Yes (Hospitalization)
  Sender: FDA-Public Use
  Company Number: 2008SP002895

PATIENT
  Age: 48 Year
  Sex: Male
  Weight: 72.8 kg

DRUGS (3)
  1. TEMODAR [Suspect]
     Indication: GLIOBLASTOMA MULTIFORME
     Dosage: PO; 2275 MG;
     Route: 048
     Dates: start: 20070905, end: 20070917
  2. TEMODAR [Suspect]
     Indication: GLIOBLASTOMA MULTIFORME
     Dosage: PO; 2275 MG;
     Route: 048
     Dates: start: 20070409
  3. TEMODAR [Suspect]
     Indication: GLIOBLASTOMA MULTIFORME
     Dosage: PO; 2275 MG;
     Route: 048
     Dates: start: 20070620

REACTIONS (5)
  - CONVULSION [None]
  - HYPERHIDROSIS [None]
  - PULMONARY EMBOLISM [None]
  - RESPIRATORY RATE INCREASED [None]
  - TACHYPNOEA [None]
